FAERS Safety Report 8720828 (Version 4)
Quarter: 2013Q1

REPORT INFORMATION
  Report Type: Spontaneous
  Country: US (occurrence: US)
  Receive Date: 20120813
  Receipt Date: 20130321
  Transmission Date: 20140127
  Serious: Yes (Hospitalization, Other)
  Sender: FDA-Public Use
  Company Number: US-009507513-1208USA001309

PATIENT
  Sex: Female

DRUGS (4)
  1. FOSAMAX [Suspect]
     Indication: BONE LOSS
     Dosage: 10 MG, QW
     Route: 048
     Dates: start: 1995, end: 2009
  2. FOSAMAX [Suspect]
     Dosage: 70 MG, QW
     Route: 048
     Dates: start: 1995, end: 2009
  3. CALCIUM (UNSPECIFIED) [Concomitant]
     Dosage: 1000
  4. ALENDRONATE SODIUM [Suspect]
     Indication: BONE LOSS
     Dosage: 70 MG, QW
     Route: 048
     Dates: start: 20090312, end: 2010

REACTIONS (5)
  - Femur fracture [Unknown]
  - Intramedullary rod insertion [Unknown]
  - Femur fracture [Unknown]
  - Low turnover osteopathy [Unknown]
  - Rheumatoid arthritis [Unknown]
